FAERS Safety Report 5861054-9 (Version None)
Quarter: 2008Q3

REPORT INFORMATION
  Report Type: 
  Country: None (occurrence: None)
  Receive Date: 20080827
  Receipt Date: 20080205
  Transmission Date: 20090109
  Serious: No
  Sender: FDA-Public Use
  Company Number: US-ABBOTT-08P-163-0436480-00

PATIENT
  Age: 61 Year
  Sex: Female

DRUGS (10)
  1. COATED PDS [Suspect]
     Indication: HIGH DENSITY LIPOPROTEIN DECREASED
     Route: 048
     Dates: start: 20080101
  2. RAMIPRIL [Concomitant]
     Indication: ISCHAEMIC HEART DISEASE PROPHYLAXIS
     Route: 048
  3. PIOGLITAZONE [Concomitant]
     Indication: INSULIN RESISTANCE
     Route: 048
  4. CITALOPRAM HYDROBROMIDE [Concomitant]
     Indication: DEPRESSION
     Route: 048
  5. ATORVASTATIN CALCIUM [Concomitant]
     Indication: BLOOD CHOLESTEROL INCREASED
     Route: 048
  6. ACETYLSALICYLIC ACID SRT [Concomitant]
     Indication: DRUG USE FOR UNKNOWN INDICATION
     Route: 048
  7. M.V.I. [Concomitant]
     Indication: VITAMIN SUPPLEMENTATION
     Route: 048
  8. CALCIUM [Concomitant]
     Indication: MINERAL SUPPLEMENTATION
     Route: 048
  9. FLAX SEED [Concomitant]
     Indication: VITAMIN SUPPLEMENTATION
     Route: 048
  10. FISH OIL [Concomitant]
     Indication: CARDIOVASCULAR EVENT PROPHYLAXIS
     Route: 048

REACTIONS (4)
  - HEADACHE [None]
  - LACRIMATION INCREASED [None]
  - OROPHARYNGEAL PAIN [None]
  - RHINORRHOEA [None]
